FAERS Safety Report 4565729-3 (Version None)
Quarter: 2005Q1

REPORT INFORMATION
  Report Type: 
  Country: None (occurrence: None)
  Receive Date: 20050126
  Receipt Date: 20050110
  Transmission Date: 20050727
  Serious: Yes (Hospitalization, Disabling)
  Sender: FDA-Public Use
  Company Number: USA050187980

PATIENT
  Sex: Male

DRUGS (2)
  1. CIALIS [Suspect]
     Indication: ERECTILE DYSFUNCTION
  2. GLUCOPHAGE [Concomitant]

REACTIONS (3)
  - DIFFICULTY IN WALKING [None]
  - STOMACH DISCOMFORT [None]
  - WHEELCHAIR USER [None]
